FAERS Safety Report 18812290 (Version 1)
Quarter: 2021Q1

REPORT INFORMATION
  Report Type: Report from Study
  Country: None (occurrence: US)
  Receive Date: 20210129
  Receipt Date: 20210129
  Transmission Date: 20210419
  Serious: Yes (Hospitalization)
  Sender: FDA-Public Use
  Company Number: US-ABBVIE-21K-163-3747545-00

PATIENT
  Age: 61 Year
  Sex: Male

DRUGS (2)
  1. HUMIRA [Suspect]
     Active Substance: ADALIMUMAB
     Indication: PSORIASIS
  2. HUMIRA [Suspect]
     Active Substance: ADALIMUMAB
     Indication: PSORIATIC ARTHROPATHY
     Route: 058
     Dates: start: 2010, end: 20201231

REACTIONS (6)
  - Pain in extremity [Unknown]
  - Inflammation [Unknown]
  - Streptococcal infection [Unknown]
  - Erythema [Unknown]
  - Psoriasis [Unknown]
  - Sinusitis [Unknown]

NARRATIVE: CASE EVENT DATE: 202101
